FAERS Safety Report 9563573 (Version 1)
Quarter: 2013Q3

REPORT INFORMATION
  Report Type: Spontaneous
  Country: US (occurrence: None)
  Receive Date: 20130926
  Receipt Date: 20130926
  Transmission Date: 20140515
  Serious: Yes (Hospitalization)
  Sender: FDA-Public Use
  Company Number: None

PATIENT
  Age: 18 Year
  Sex: Male
  Weight: 105.8 kg

DRUGS (5)
  1. BUSULFAN [Suspect]
  2. CYCLOPHOSPHAMIDE [Suspect]
  3. LYMPHOCYTE IMMUNE GLOBULIN [Suspect]
  4. MESNA [Suspect]
  5. METHOTREXATE [Suspect]

REACTIONS (8)
  - Fluid overload [None]
  - Pseudomonal bacteraemia [None]
  - Renal failure [None]
  - Mucosal inflammation [None]
  - Venoocclusive liver disease [None]
  - Respiratory disorder [None]
  - Pleural effusion [None]
  - Hypotension [None]
